FAERS Safety Report 9058521 (Version 2)
Quarter: 2013Q1

REPORT INFORMATION
  Report Type: Spontaneous
  Country: US (occurrence: US)
  Receive Date: 20130211
  Receipt Date: 20130212
  Transmission Date: 20140127
  Serious: Yes (Death, Hospitalization, Other)
  Sender: FDA-Public Use
  Company Number: US-JNJFOC-20130203492

PATIENT
  Sex: Male

DRUGS (5)
  1. TYLENOL [Suspect]
     Route: 048
  2. TYLENOL [Suspect]
     Indication: HERPES ZOSTER
     Dosage: 1 OR 2 PILLS
     Route: 048
     Dates: end: 20110101
  3. LYRICA [Concomitant]
  4. COUMADIN [Concomitant]
  5. UNSPECIFIED NARCOTIC [Concomitant]

REACTIONS (2)
  - Death [Fatal]
  - Overdose [Fatal]
